FAERS Safety Report 9169811 (Version 1)
Quarter: 2013Q1

REPORT INFORMATION
  Report Type: Spontaneous
  Country: US (occurrence: US)
  Receive Date: 20130318
  Receipt Date: 20130318
  Transmission Date: 20140127
  Serious: No
  Sender: FDA-Public Use
  Company Number: US-009507513-1303USA000745

PATIENT
  Sex: 0

DRUGS (2)
  1. COSOPT [Suspect]
     Dosage: UNK
     Route: 047
  2. COSOPT [Suspect]
     Dosage: UNK

REACTIONS (1)
  - Eye irritation [Recovered/Resolved]
